FAERS Safety Report 23040003 (Version 1)
Quarter: 2023Q4

REPORT INFORMATION
  Report Type: Spontaneous
  Country: IN (occurrence: IN)
  Receive Date: 20231006
  Receipt Date: 20231006
  Transmission Date: 20240110
  Serious: Yes (Death, Hospitalization, Other)
  Sender: FDA-Public Use
  Company Number: IN-TORRENT-00003354

PATIENT
  Age: 12 Day
  Sex: Male

DRUGS (8)
  1. LEVETIRACETAM [Suspect]
     Active Substance: LEVETIRACETAM
     Indication: Myoclonic epilepsy
     Dosage: UNKNOWN
     Route: 042
  2. AMIKACIN [Suspect]
     Active Substance: AMIKACIN
     Indication: Meningitis
     Dosage: UNKNOWN
     Route: 042
  3. CEFOTAXIME [Suspect]
     Active Substance: CEFOTAXIME SODIUM
     Indication: Meningitis
     Dosage: UNKNOWN
     Route: 042
  4. MIDAZOLAM [Suspect]
     Active Substance: MIDAZOLAM
     Indication: Neonatal seizure
     Dosage: UNKNOWN
     Route: 042
  5. SODIUM CHLORIDE [Suspect]
     Active Substance: SODIUM CHLORIDE
     Indication: Shock
     Dosage: AT RATE OF 10 MCG/KG/MIN
     Route: 040
  6. PHENOBARBITAL [Suspect]
     Active Substance: PHENOBARBITAL
     Indication: Neonatal seizure
     Route: 042
  7. PHENYTOIN [Suspect]
     Active Substance: PHENYTOIN
     Indication: Myoclonic epilepsy
     Dosage: UNKNOWN
     Route: 042
  8. PYRIDOXINE [Suspect]
     Active Substance: PYRIDOXINE
     Indication: Neonatal seizure
     Dosage: UNKNOWN
     Route: 065

REACTIONS (1)
  - Drug ineffective [Fatal]
